FAERS Safety Report 5247215-0 (Version None)
Quarter: 2007Q1

REPORT INFORMATION
  Report Type: 
  Country: None (occurrence: None)
  Receive Date: 20070220
  Receipt Date: 20070207
  Transmission Date: 20070707
  Serious: Yes (Hospitalization, Other)
  Sender: FDA-Public Use
  Company Number: 2007US-05701

PATIENT
  Age: 15 Year
  Sex: Female

DRUGS (1)
  1. ISOTRETINOIN [Suspect]
     Indication: ACNE
     Dosage: 40 MG, TID, ORAL
     Route: 048
     Dates: start: 20061201, end: 20061201

REACTIONS (2)
  - BLOOD TRIGLYCERIDES INCREASED [None]
  - PULMONARY THROMBOSIS [None]
